FAERS Safety Report 5383027-5 (Version None)
Quarter: 2007Q3

REPORT INFORMATION
  Report Type: 
  Country: None (occurrence: None)
  Receive Date: 20070710
  Receipt Date: 20070628
  Transmission Date: 20080115
  Serious: Yes (Death)
  Sender: FDA-Public Use
  Company Number: GB-ROCHE-503604

PATIENT
  Age: 62 Year
  Sex: Male

DRUGS (4)
  1. CAPECITABINE [Suspect]
     Indication: COLORECTAL CANCER METASTATIC
     Route: 048
     Dates: start: 20070522, end: 20070528
  2. CETUXIMAB [Suspect]
     Indication: COLORECTAL CANCER METASTATIC
     Route: 041
     Dates: start: 20070501, end: 20070515
  3. OXALIPLATIN [Suspect]
     Route: 042
     Dates: start: 20070522, end: 20070522
  4. FLUOROURACIL [Concomitant]
     Dates: start: 20070522

REACTIONS (1)
  - SUDDEN DEATH [None]
